FAERS Safety Report 23950188 (Version 1)
Quarter: 2024Q2

REPORT INFORMATION
  Report Type: Spontaneous
  Country: US (occurrence: US)
  Receive Date: 20240607
  Receipt Date: 20240607
  Transmission Date: 20240716
  Serious: No
  Sender: FDA-Public Use
  Company Number: US-APOTEX-2023AP015839

PATIENT
  Age: 50 Year
  Sex: Female

DRUGS (2)
  1. CYCLOSPORINE [Suspect]
     Active Substance: CYCLOSPORINE
     Indication: Pyoderma gangrenosum
     Dosage: UNK
     Route: 048
  2. ADALIMUMAB [Concomitant]
     Active Substance: ADALIMUMAB\ISOPROPYL ALCOHOL
     Indication: Pyoderma gangrenosum
     Dosage: UNK
     Route: 065

REACTIONS (3)
  - Blood uric acid increased [Unknown]
  - Blood triglycerides increased [Unknown]
  - Blood creatinine increased [Unknown]
